FAERS Safety Report 8988983 (Version 2)
Quarter: 2013Q1

REPORT INFORMATION
  Report Type: Spontaneous
  Country: US (occurrence: US)
  Receive Date: 20121228
  Receipt Date: 20130117
  Transmission Date: 20140127
  Serious: Yes (Disabling, Other)
  Sender: FDA-Public Use
  Company Number: US-JNJFOC-20121210436

PATIENT
  Sex: Male
  Weight: 70.1 kg

DRUGS (11)
  1. REMICADE [Suspect]
     Indication: CROHN^S DISEASE
     Route: 042
     Dates: start: 20120517, end: 20121020
  2. METHOTREXATE [Concomitant]
     Indication: CROHN^S DISEASE
     Route: 058
  3. PRILOSEC [Concomitant]
     Route: 065
  4. FERROUS SULFATE [Concomitant]
     Route: 065
  5. FOLIC ACID [Concomitant]
     Route: 065
  6. PENTASA [Concomitant]
     Route: 065
  7. LERON [Concomitant]
     Route: 065
  8. STEROIDS NOS [Concomitant]
     Route: 065
  9. VITAMIN D [Concomitant]
     Dosage: 2000U
     Route: 065
  10. BACTRIM [Concomitant]
     Route: 065
  11. TRIAMCINOLONE [Concomitant]
     Route: 065

REACTIONS (2)
  - Psoriasis [Recovering/Resolving]
  - Crohn^s disease [Unknown]
